FAERS Safety Report 7580493-1 (Version None)
Quarter: 2011Q2

REPORT INFORMATION
  Report Type: 
  Country: None (occurrence: None)
  Receive Date: 20110629
  Receipt Date: 20110608
  Transmission Date: 20111010
  Serious: Yes (Hospitalization, Congenital Anomaly)
  Sender: FDA-Public Use
  Company Number: A0930144A

PATIENT
  Sex: Male

DRUGS (1)
  1. PAXIL [Suspect]
     Indication: DEPRESSION
     Dosage: 40MG IN THE MORNING
     Route: 064
     Dates: start: 20011031, end: 20031023

REACTIONS (14)
  - EPILEPSY [None]
  - CONGENITAL BRAIN DAMAGE [None]
  - ENCEPHALOPATHY [None]
  - ATTENTION DEFICIT/HYPERACTIVITY DISORDER [None]
  - CEREBRAL PALSY [None]
  - CEREBRAL INFARCTION [None]
  - DRUG EXPOSURE DURING PREGNANCY [None]
  - OBSESSIVE-COMPULSIVE DISORDER [None]
  - RESPIRATORY DISTRESS [None]
  - PATENT DUCTUS ARTERIOSUS [None]
  - PORENCEPHALY [None]
  - NECROTISING COLITIS [None]
  - RETINOPATHY OF PREMATURITY [None]
  - DEVELOPMENTAL DELAY [None]
